FAERS Safety Report 10782358 (Version 2)
Quarter: 2015Q1

REPORT INFORMATION
  Report Type: Spontaneous
  Country: US (occurrence: US)
  Receive Date: 20150210
  Receipt Date: 20150217
  Transmission Date: 20150721
  Serious: Yes (Other)
  Sender: FDA-Public Use
  Company Number: US-EISAI MEDICAL RESEARCH-EC-2015-003503

PATIENT
  Age: 52 Year
  Sex: Female
  Weight: 129 kg

DRUGS (1)
  1. BELVIQ [Suspect]
     Active Substance: LORCASERIN HYDROCHLORIDE
     Indication: WEIGHT DECREASED
     Route: 048
     Dates: start: 20140410, end: 20140701

REACTIONS (7)
  - Anxiety [Recovering/Resolving]
  - Aggression [Recovering/Resolving]
  - Paranoia [Recovering/Resolving]
  - Crying [Recovering/Resolving]
  - Agitation [Recovering/Resolving]
  - Depression [Recovering/Resolving]
  - Hostility [Recovering/Resolving]

NARRATIVE: CASE EVENT DATE: 201405
